FAERS Safety Report 19616157 (Version 1)
Quarter: 2021Q3

REPORT INFORMATION
  Report Type: Spontaneous
  Country: US (occurrence: US)
  Receive Date: 20210727
  Receipt Date: 20210727
  Transmission Date: 20211014
  Serious: No
  Sender: FDA-Public Use
  Company Number: US-ABBVIE-21K-163-3815694-00

PATIENT
  Sex: Female

DRUGS (1)
  1. SYNTHROID [Suspect]
     Active Substance: LEVOTHYROXINE SODIUM
     Indication: PRODUCT USED FOR UNKNOWN INDICATION
     Route: 048

REACTIONS (7)
  - Gastrooesophageal reflux disease [Unknown]
  - Weight increased [Unknown]
  - Gastrointestinal disorder [Unknown]
  - Pain [Unknown]
  - Urticaria [Unknown]
  - Rash [Unknown]
  - Fatigue [Unknown]
